FAERS Safety Report 23467552 (Version 1)
Quarter: 2024Q1

REPORT INFORMATION
  Report Type: Spontaneous
  Country: CA (occurrence: CA)
  Receive Date: 20240201
  Receipt Date: 20240201
  Transmission Date: 20240409
  Serious: Yes (Death)
  Sender: FDA-Public Use
  Company Number: CA-FreseniusKabi-FK202401413

PATIENT
  Sex: Male

DRUGS (6)
  1. PROPOFOL [Suspect]
     Active Substance: PROPOFOL
     Indication: Product used for unknown indication
     Dosage: DOSAGE FORM: NOT SPECIFIED
     Route: 065
  2. ISOFLURANE [Suspect]
     Active Substance: ISOFLURANE
     Indication: Product used for unknown indication
     Dosage: ROA: INHALATION
  3. KETAMINE [Suspect]
     Active Substance: KETAMINE
     Indication: Product used for unknown indication
     Dosage: ROA: UNKNOWN
  4. LIDOCAINE [Suspect]
     Active Substance: LIDOCAINE
     Indication: Product used for unknown indication
     Dosage: ROA: OINTMENT TOPICAL
  5. SEVOFLURANE [Suspect]
     Active Substance: SEVOFLURANE
     Indication: Product used for unknown indication
     Dosage: ROA: INHALATION?DOSAGE FORM: LIQUID INHALATION
  6. SUPRANE [Suspect]
     Active Substance: DESFLURANE
     Indication: Product used for unknown indication
     Dosage: ROA: INHALATION?DOSAGE FORM: LIQUID INHALATION

REACTIONS (1)
  - Toxicity to various agents [Fatal]
